FAERS Safety Report 7618917-3 (Version None)
Quarter: 2011Q3

REPORT INFORMATION
  Report Type: 
  Country: None (occurrence: None)
  Receive Date: 20110718
  Receipt Date: 20110710
  Transmission Date: 20111222
  Serious: No
  Sender: FDA-Public Use
  Company Number: US-B.I. PHARMACEUTICALS,INC./RIDGEFIELD-2011-BP-17488BP

PATIENT
  Sex: Male

DRUGS (2)
  1. UNSPECIFIED VITAMINS [Concomitant]
  2. PRADAXA [Suspect]
     Indication: ATRIAL FIBRILLATION
     Dosage: 3020 MG
     Route: 048
     Dates: start: 20101201, end: 20110501

REACTIONS (2)
  - FLATULENCE [None]
  - BONE PAIN [None]
